FAERS Safety Report 9343867 (Version 1)
Quarter: 2013Q2

REPORT INFORMATION
  Report Type: Spontaneous
  Country: US (occurrence: US)
  Receive Date: 20130612
  Receipt Date: 20130612
  Transmission Date: 20140414
  Serious: No
  Sender: FDA-Public Use
  Company Number: US-PFIZER INC-2013175794

PATIENT
  Age: 49 Year
  Sex: Female

DRUGS (4)
  1. NEURONTIN [Suspect]
     Dosage: 800 MG, UNK (1 -3 TIMES A DAY)
  2. ADVAIR [Suspect]
     Dosage: UNK
  3. CYMBALTA [Suspect]
     Dosage: UNK
  4. LANTUS [Suspect]
     Dosage: UNK

REACTIONS (1)
  - Drug hypersensitivity [Unknown]
